FAERS Safety Report 9153960 (Version 1)
Quarter: 2013Q1

REPORT INFORMATION
  Report Type: Spontaneous
  Country: DK (occurrence: None)
  Receive Date: 20130207
  Receipt Date: 20130207
  Transmission Date: 20140127
  Serious: Yes (Other)
  Sender: FDA-Public Use
  Company Number: 2013MA000896

PATIENT
  Sex: Male

DRUGS (2)
  1. SERTRALINE HYDROCHLORIDE [Suspect]
     Indication: DEPRESSION
     Route: 064
     Dates: start: 20090811, end: 20100506
  2. FOLSAEURE [Concomitant]

REACTIONS (3)
  - Agitation neonatal [None]
  - Muscle twitching [None]
  - Maternal drugs affecting foetus [None]
